FAERS Safety Report 25130331 (Version 1)
Quarter: 2025Q1

REPORT INFORMATION
  Report Type: Spontaneous
  Country: US (occurrence: US)
  Receive Date: 20250327
  Receipt Date: 20250327
  Transmission Date: 20250409
  Serious: No
  Sender: ESPERION THERAPEUTICS
  Company Number: US-ESPERIONTHERAPEUTICS-2025USA00212

PATIENT
  Sex: Female

DRUGS (1)
  1. NEXLIZET [Suspect]
     Active Substance: BEMPEDOIC ACID\EZETIMIBE
     Indication: Blood cholesterol increased
     Dosage: 1 TABLET DAILY
     Route: 048

REACTIONS (3)
  - Pain [Not Recovered/Not Resolved]
  - Vulvovaginal mycotic infection [Unknown]
  - Fungal infection [Unknown]
